FAERS Safety Report 8010321-1 (Version None)
Quarter: 2011Q4

REPORT INFORMATION
  Report Type: 
  Country: None (occurrence: None)
  Receive Date: 20111228
  Receipt Date: 20111215
  Transmission Date: 20120403
  Serious: Yes (Hospitalization, Other)
  Sender: FDA-Public Use
  Company Number: AT-ELI_LILLY_AND_COMPANY-AT201112004986

PATIENT
  Sex: Male

DRUGS (1)
  1. FORTEO [Suspect]
     Dosage: UNK, UNKNOWN
     Route: 065

REACTIONS (5)
  - VARICES OESOPHAGEAL [None]
  - CARDIAC DISORDER [None]
  - HAEMATEMESIS [None]
  - HEPATIC CIRRHOSIS [None]
  - FEELING COLD [None]
